FAERS Safety Report 4382495-5 (Version None)
Quarter: 2004Q2

REPORT INFORMATION
  Report Type: 
  Country: None (occurrence: None)
  Receive Date: 20040607
  Receipt Date: 20040602
  Transmission Date: 20050107
  Serious: Yes (Other)
  Sender: FDA-Public Use
  Company Number: HQ0026323APR2001

PATIENT
  Age: 3 Year
  Sex: Male

DRUGS (1)
  1. REFACTO [Suspect]
     Indication: PROPHYLAXIS
     Dosage: 500 IU 3X PER 1 WK
     Dates: start: 20000812

REACTIONS (1)
  - DRUG SPECIFIC ANTIBODY PRESENT [None]
